FAERS Safety Report 9722179 (Version 2)
Quarter: 2013Q4

REPORT INFORMATION
  Report Type: Spontaneous
  Country: GB (occurrence: GB)
  Receive Date: 20131202
  Receipt Date: 20131213
  Transmission Date: 20140711
  Serious: Yes (Life-Threatening, Hospitalization, Other)
  Sender: FDA-Public Use
  Company Number: GB-ACCORD-020441

PATIENT
  Age: 68 Year
  Sex: Female

DRUGS (12)
  1. CLOPIDOGREL [Suspect]
     Indication: PERIPHERAL VASCULAR DISORDER
     Route: 048
     Dates: start: 2011, end: 20131108
  2. NAPROXEN [Suspect]
     Indication: BACK PAIN
     Route: 048
     Dates: start: 20131018, end: 20131108
  3. CARBOMER [Concomitant]
  4. MACROGOL [Concomitant]
  5. SALBUTAMOL [Concomitant]
  6. ADALAT LA [Concomitant]
  7. ATORVASTATIN CALCIUM [Concomitant]
  8. CHOLECALCIFEROL [Concomitant]
  9. CALCIUM CARBONATE [Concomitant]
  10. BENDROFLUMETHIAZIDE [Concomitant]
  11. ALENDRONIC ACID [Concomitant]
  12. POLYETHYLENE GLYCOL [Concomitant]

REACTIONS (9)
  - Gastric ulcer haemorrhage [Recovering/Resolving]
  - Oesophagitis [Recovering/Resolving]
  - Anaemia [Unknown]
  - Malaise [Unknown]
  - Haematemesis [Unknown]
  - Melaena [Unknown]
  - Gastric ulcer [Unknown]
  - Duodenitis [Unknown]
  - Wound secretion [Unknown]
